FAERS Safety Report 5364675-5 (Version None)
Quarter: 2007Q2

REPORT INFORMATION
  Report Type: 
  Country: None (occurrence: None)
  Receive Date: 20070621
  Receipt Date: 20070614
  Transmission Date: 20071010
  Serious: Yes (Other)
  Sender: FDA-Public Use
  Company Number: PHMT2007CA01418

PATIENT
  Sex: Female

DRUGS (1)
  1. ZOMETA [Suspect]
     Route: 042

REACTIONS (2)
  - SENSITIVITY OF TEETH [None]
  - WEIGHT DECREASED [None]
